FAERS Safety Report 16849833 (Version 1)
Quarter: 2019Q4

REPORT INFORMATION
  Report Type: Spontaneous
  Country: US (occurrence: US)
  Receive Date: 20190925
  Receipt Date: 20190925
  Transmission Date: 20200122
  Serious: Yes (Life-Threatening)
  Sender: FDA-Public Use
  Company Number: None

PATIENT
  Age: 39 Year
  Sex: Female
  Weight: 84.7 kg

DRUGS (7)
  1. EMEND (FOSAPREPITANT DIMEGLUMINE) [Suspect]
     Active Substance: FOSAPREPITANT DIMEGLUMINE
     Indication: VOMITING
     Dosage: ?          OTHER FREQUENCY:ONCE OVER 20 MINUT;?
     Route: 042
     Dates: start: 20190806, end: 20190806
  2. TIMOLOL 0.5% OPTHLAMIC SOLUTION [Concomitant]
  3. FLUTICASONE PROPIONATE 50 MCG/SPRAY [Concomitant]
  4. EMEND (FOSAPREPITANT DIMEGLUMINE) [Suspect]
     Active Substance: FOSAPREPITANT DIMEGLUMINE
     Indication: NAUSEA
     Dosage: ?          OTHER FREQUENCY:ONCE OVER 20 MINUT;?
     Route: 042
     Dates: start: 20190806, end: 20190806
  5. ALBUTEROL 90 MCG/PUFF INHALER [Concomitant]
  6. LATANOPROST 0.005% OPHTHALMIC SOLUTION [Concomitant]
     Active Substance: LATANOPROST
  7. NORETHINDRONE-ESTRADIOL-IRON 1MG-20MCG-75MG TABLET [Concomitant]

REACTIONS (3)
  - Abdominal pain [None]
  - Ventricular tachycardia [None]
  - Blood pressure increased [None]

NARRATIVE: CASE EVENT DATE: 20190806
